FAERS Safety Report 8198082-7 (Version None)
Quarter: 2012Q1

REPORT INFORMATION
  Report Type: 
  Country: None (occurrence: None)
  Receive Date: 20120309
  Receipt Date: 20120203
  Transmission Date: 20120608
  Serious: No
  Sender: FDA-Public Use
  Company Number: US-AMGEN-USASP2012007396

PATIENT
  Age: 74 Year
  Sex: Male

DRUGS (3)
  1. FLOMAX [Concomitant]
  2. XGEVA [Suspect]
     Indication: PROSTATE CANCER METASTATIC
     Dates: start: 20120201
  3. LIPITOR [Concomitant]

REACTIONS (1)
  - PAIN IN JAW [None]
